FAERS Safety Report 14402499 (Version 1)
Quarter: 2018Q1

REPORT INFORMATION
  Report Type: Spontaneous
  Country: IL (occurrence: IL)
  Receive Date: 20180117
  Receipt Date: 20180117
  Transmission Date: 20180509
  Serious: Yes (Other)
  Sender: FDA-Public Use
  Company Number: IL-GLAXOSMITHKLINE-IL2018GSK007537

PATIENT

DRUGS (1)
  1. RELVAR ELLIPTA [Suspect]
     Active Substance: FLUTICASONE FUROATE\VILANTEROL TRIFENATATE
     Indication: ASTHMA
     Dosage: 92 UG, UNK
     Route: 055

REACTIONS (4)
  - Withdrawal syndrome [Unknown]
  - Drug dependence [Unknown]
  - Dyspnoea [Unknown]
  - Feeling abnormal [Unknown]
